FAERS Safety Report 4984451-2 (Version None)
Quarter: 2006Q2

REPORT INFORMATION
  Report Type: 
  Country: None (occurrence: None)
  Receive Date: 20060427
  Receipt Date: 20060309
  Transmission Date: 20061013
  Serious: No
  Sender: FDA-Public Use
  Company Number: NL-GLAXOSMITHKLINE-B0416084A

PATIENT
  Age: 49 Year
  Sex: Male
  Weight: 94 kg

DRUGS (3)
  1. FLUTICASONE PROPIONATE [Suspect]
     Dosage: 50MCG UNKNOWN
     Route: 065
     Dates: start: 20060301, end: 20060315
  2. INSULIN NOVO LENTE [Concomitant]
     Dosage: 20IU PER DAY
     Dates: start: 20030205
  3. INSULIN [Concomitant]
     Dosage: 8IU PER DAY
     Dates: start: 20040614

REACTIONS (3)
  - BLOOD GLUCOSE DECREASED [None]
  - BLOOD GLUCOSE NORMAL [None]
  - THERAPEUTIC RESPONSE UNEXPECTED [None]
